FAERS Safety Report 13450002 (Version 1)
Quarter: 2017Q2

REPORT INFORMATION
  Report Type: Spontaneous
  Country: US (occurrence: US)
  Receive Date: 20170417
  Receipt Date: 20170417
  Transmission Date: 20170830
  Serious: No
  Sender: FDA-Public Use
  Company Number: US-BION-20160670

PATIENT
  Age: 73 Year
  Sex: Female
  Weight: 80.74 kg

DRUGS (3)
  1. 81MG BAYER ASPIRIN [Concomitant]
     Indication: MYOCARDIAL INFARCTION
     Dosage: 2 TABLETS DAILY
  2. PRILOSEC [Concomitant]
     Active Substance: OMEPRAZOLE MAGNESIUM
     Indication: PEPTIC ULCER
  3. ALEVE [Suspect]
     Active Substance: NAPROXEN SODIUM
     Indication: ANALGESIC THERAPY
     Dosage: 2 LIQUID GELS TWICE DAILY
     Route: 048

REACTIONS (5)
  - Product use issue [Unknown]
  - Incorrect dose administered [Unknown]
  - Incorrect drug administration duration [Unknown]
  - Drug ineffective for unapproved indication [Unknown]
  - Poor quality drug administered [Unknown]
